FAERS Safety Report 5734586-1 (Version None)
Quarter: 2008Q2

REPORT INFORMATION
  Report Type: 
  Country: None (occurrence: None)
  Receive Date: 20080508
  Receipt Date: 20080508
  Transmission Date: 20081010
  Serious: No
  Sender: FDA-Public Use
  Company Number: None

PATIENT
  Sex: Male

DRUGS (1)
  1. SINGULAIR [Suspect]
     Indication: ASTHMA
     Dosage: 5MG 1X DAILY PO
     Route: 048
     Dates: start: 20040315, end: 20080329

REACTIONS (6)
  - ABNORMAL BEHAVIOUR [None]
  - ANGER [None]
  - ANOREXIA NERVOSA [None]
  - ANXIETY [None]
  - GASTROENTERITIS VIRAL [None]
  - MOOD SWINGS [None]
